FAERS Safety Report 7130662-X (Version None)
Quarter: 2010Q4

REPORT INFORMATION
  Report Type: 
  Country: None (occurrence: None)
  Receive Date: 20101201
  Receipt Date: 20101123
  Transmission Date: 20110411
  Serious: Yes (Death)
  Sender: FDA-Public Use
  Company Number: GB-PFIZER INC-2010150156

PATIENT
  Age: 67 Year
  Sex: Male
  Weight: 65 kg

DRUGS (3)
  1. CISPLATIN [Suspect]
     Indication: GASTROOESOPHAGEAL CANCER
     Dosage: 60 MG/M2, THREE TIMES WEEKLY
     Route: 042
     Dates: start: 20100219, end: 20100319
  2. EPIRUBICIN HYDROCHLORIDE [Suspect]
     Indication: GASTROOESOPHAGEAL CANCER
     Dosage: 50 MG/M2, THREE TIMES WEEKLY
     Route: 042
     Dates: start: 20100219, end: 20100319
  3. XELODA [Suspect]
     Indication: GASTROOESOPHAGEAL CANCER
     Dosage: 625 MG/M2, 2X/DAY
     Route: 048
     Dates: start: 20100219, end: 20100324

REACTIONS (12)
  - ARTERIOSCLEROSIS CORONARY ARTERY [None]
  - ASPERGILLOSIS [None]
  - CARDIO-RESPIRATORY ARREST [None]
  - DIARRHOEA [None]
  - DISEASE PROGRESSION [None]
  - DYSPHAGIA [None]
  - GASTROOESOPHAGEAL CANCER [None]
  - ILEAL ULCER [None]
  - JEJUNAL ULCER [None]
  - LETHARGY [None]
  - LEUKOPENIA [None]
  - NEUTROPENIA [None]
